FAERS Safety Report 6972587-6 (Version None)
Quarter: 2010Q3

REPORT INFORMATION
  Report Type: 
  Country: None (occurrence: None)
  Receive Date: 20100909
  Receipt Date: 20100831
  Transmission Date: 20110219
  Serious: Yes (Disabling)
  Sender: FDA-Public Use
  Company Number: ID-ASTRAZENECA-2010SE41149

PATIENT
  Age: 42 Year
  Sex: Female
  Weight: 69 kg

DRUGS (2)
  1. IRESSA [Suspect]
     Indication: NON-SMALL CELL LUNG CANCER
     Route: 048
     Dates: start: 20090821, end: 20091210
  2. IRESSA [Suspect]
     Route: 048
     Dates: start: 20100210

REACTIONS (3)
  - ACNE [None]
  - HEADACHE [None]
  - INSOMNIA [None]
